FAERS Safety Report 18000043 (Version 3)
Quarter: 2021Q2

REPORT INFORMATION
  Report Type: Spontaneous
  Country: IT (occurrence: IT)
  Receive Date: 20200709
  Receipt Date: 20210628
  Transmission Date: 20210717
  Serious: Yes (Death, Hospitalization)
  Sender: FDA-Public Use
  Company Number: IT-TEVA-2020-IT-1796717

PATIENT
  Age: 55 Year
  Sex: Female

DRUGS (3)
  1. PREDNISONE. [Suspect]
     Active Substance: PREDNISONE
     Indication: DERMATOMYOSITIS
     Route: 065
  2. VORICONAZOLE. [Suspect]
     Active Substance: VORICONAZOLE
     Indication: CEREBRAL ASPERGILLOSIS
     Dosage: 400 MILLIGRAM DAILY;
     Route: 065
  3. AMPHOTERICIN B LIPOSOMAL [Suspect]
     Active Substance: AMPHOTERICIN B
     Indication: CEREBRAL ASPERGILLOSIS
     Route: 065

REACTIONS (7)
  - Cerebral aspergillosis [Fatal]
  - Drug ineffective [Fatal]
  - Respiratory failure [Fatal]
  - Mucormycosis [Fatal]
  - Infectious pleural effusion [Fatal]
  - Hemiparesis [Fatal]
  - Hypoaesthesia [Fatal]
